FAERS Safety Report 18698318 (Version 1)
Quarter: 2021Q1

REPORT INFORMATION
  Report Type: Spontaneous
  Country: CH (occurrence: CH)
  Receive Date: 20210105
  Receipt Date: 20210105
  Transmission Date: 20210419
  Serious: Yes (Other)
  Sender: FDA-Public Use
  Company Number: CH-TEVA-2020-CH-1865670

PATIENT
  Age: 73 Year
  Sex: Female

DRUGS (16)
  1. MICARDIS AMLO [Suspect]
     Active Substance: AMLODIPINE BESYLATE\TELMISARTAN
     Dosage: 1 DOSAGE FORMS DAILY; 1 DF = 5 MG AMLODIPINE BESILATE + 40 MG TELMISARTAN
     Route: 048
     Dates: start: 20200103
  2. NICOTINEL?TTS [Concomitant]
     Active Substance: NICOTINE
     Dates: end: 202001
  3. ROSUVASTATIN MEPHA LACTAB 5 MG [Suspect]
     Active Substance: ROSUVASTATIN
     Dosage: 5 MILLIGRAM DAILY;
     Route: 048
     Dates: start: 20200306
  4. ASPIRIN CARDIO [Concomitant]
     Active Substance: ASPIRIN
     Route: 048
     Dates: start: 201910
  5. REMERON [Suspect]
     Active Substance: MIRTAZAPINE
     Dosage: 30 MILLIGRAM DAILY;
     Route: 048
     Dates: start: 20200131
  6. BELOC ZOK [Concomitant]
     Active Substance: METOPROLOL SUCCINATE
     Route: 048
     Dates: start: 20200922
  7. BRILIQUE [Concomitant]
     Active Substance: TICAGRELOR
     Dates: end: 202001
  8. IMOVANE [Concomitant]
     Active Substance: ZOPICLONE
     Dates: end: 202001
  9. REMERON [Suspect]
     Active Substance: MIRTAZAPINE
     Dosage: 15 MILLIGRAM DAILY;
     Route: 048
     Dates: start: 20200102, end: 20200131
  10. ATORVASTATIN [Suspect]
     Active Substance: ATORVASTATIN
     Dosage: 40 MILLIGRAM DAILY;
     Route: 048
     Dates: end: 202001
  11. TEMESTA [LORAZEPAM] [Concomitant]
     Active Substance: LORAZEPAM
     Dosage: IF NECESSARY
     Route: 048
     Dates: start: 202009
  12. ZOLPIDEM [Concomitant]
     Active Substance: ZOLPIDEM TARTRATE
     Route: 048
     Dates: start: 20200928
  13. PRAMIPEXOL ORION [Concomitant]
     Active Substance: PRAMIPEXOLE DIHYDROCHLORIDE
     Route: 048
     Dates: start: 20200922
  14. SERTRALINE [Concomitant]
     Active Substance: SERTRALINE HYDROCHLORIDE
     Dates: end: 202001
  15. CIRCADIN [Concomitant]
     Active Substance: MELATONIN
     Dates: end: 202001
  16. ULTIBRO BREEZHALER [Concomitant]
     Active Substance: GLYCOPYRRONIUM\INDACATEROL
     Dates: start: 20200728

REACTIONS (2)
  - Feeding disorder [Not Recovered/Not Resolved]
  - Dysgeusia [Not Recovered/Not Resolved]

NARRATIVE: CASE EVENT DATE: 202001
